FAERS Safety Report 17843924 (Version 2)
Quarter: 2022Q4

REPORT INFORMATION
  Report Type: Spontaneous
  Country: US (occurrence: US)
  Receive Date: 20200601
  Receipt Date: 20221018
  Transmission Date: 20230113
  Serious: Yes (Other)
  Sender: FDA-Public Use
  Company Number: US-SUN PHARMACEUTICAL INDUSTRIES LTD-2020R1-248489

PATIENT
  Age: 88 Year
  Sex: Male

DRUGS (1)
  1. NITROFURANTOIN [Suspect]
     Active Substance: NITROFURANTOIN
     Indication: Urinary tract infection
     Dosage: 10 MILLIGRAM, DAILY
     Route: 065
     Dates: end: 2008

REACTIONS (2)
  - Interstitial lung disease [Unknown]
  - Chronic respiratory failure [Unknown]
